FAERS Safety Report 8023244-9 (Version None)
Quarter: 2012Q1

REPORT INFORMATION
  Report Type: 
  Country: None (occurrence: None)
  Receive Date: 20120104
  Receipt Date: 20111227
  Transmission Date: 20120608
  Serious: Yes (Hospitalization, Other)
  Sender: FDA-Public Use
  Company Number: US-BAYER-2011-087372

PATIENT
  Age: 32 Year
  Sex: Female
  Weight: 139 kg

DRUGS (6)
  1. AMLODIPINE [Concomitant]
     Dosage: 10 MG, DAILY
     Route: 048
  2. NORCO [Concomitant]
     Indication: BACK PAIN
     Dosage: AS NEEDED
     Route: 048
  3. EXFORGE [Concomitant]
     Indication: HYPERTENSION
     Route: 048
  4. YAZ [Suspect]
     Indication: CONTRACEPTION
     Dosage: UNK
     Dates: start: 20090101, end: 20100101
  5. DIOVAN [Concomitant]
  6. CLONIDINE [Concomitant]
     Indication: HYPERTENSION
     Dosage: 0.2 MG, UTWICE A DAY
     Route: 048

REACTIONS (4)
  - CHOLECYSTITIS CHRONIC [None]
  - GALLBLADDER DISORDER [None]
  - PAIN [None]
  - BILIARY DYSKINESIA [None]
